FAERS Safety Report 24228903 (Version 1)
Quarter: 2024Q3

REPORT INFORMATION
  Report Type: Spontaneous
  Country: FR (occurrence: FR)
  Receive Date: 20240820
  Receipt Date: 20240820
  Transmission Date: 20241016
  Serious: Yes (Hospitalization)
  Sender: MYLAN
  Company Number: FR-OTSUKA-2024_021376

PATIENT
  Age: 32 Year
  Sex: Male

DRUGS (3)
  1. ARIPIPRAZOLE [Suspect]
     Active Substance: ARIPIPRAZOLE
     Indication: Product used for unknown indication
     Dosage: 20 MILLIGRAM
     Route: 065
  2. ABILIFY MAINTENA [Suspect]
     Active Substance: ARIPIPRAZOLE
     Indication: Psychotic disorder
     Dosage: 800 MILLIGRAM (400 MG 2 INJECTIONS FOR INITIATION)
     Route: 065
     Dates: start: 20240725
  3. ABILIFY MAINTENA [Suspect]
     Active Substance: ARIPIPRAZOLE
     Dosage: 400 MILLIGRAM
     Route: 048
     Dates: start: 20240730, end: 20240730

REACTIONS (6)
  - Disorganised speech [Unknown]
  - Screaming [Unknown]
  - Disorientation [Unknown]
  - Agitation [Unknown]
  - Incorrect route of product administration [Unknown]
  - Off label use [Not Recovered/Not Resolved]

NARRATIVE: CASE EVENT DATE: 20240725
